FAERS Safety Report 9773183 (Version 1)
Quarter: 2013Q4

REPORT INFORMATION
  Report Type: Spontaneous
  Country: US (occurrence: None)
  Receive Date: 20131217
  Receipt Date: 20131217
  Transmission Date: 20140711
  Serious: Yes (Other)
  Sender: FDA-Public Use
  Company Number: US-013951

PATIENT
  Sex: Female

DRUGS (1)
  1. MENOPUR [Suspect]
     Indication: IN VITRO FERTILISATION

REACTIONS (2)
  - Abortion spontaneous [None]
  - Drug ineffective [None]
